FAERS Safety Report 8055569-5 (Version None)
Quarter: 2012Q1

REPORT INFORMATION
  Report Type: 
  Country: None (occurrence: None)
  Receive Date: 20120119
  Receipt Date: 20120116
  Transmission Date: 20120608
  Serious: Yes (Other)
  Sender: FDA-Public Use
  Company Number: JP-BAYER-2011-108601

PATIENT
  Age: 70 Year
  Sex: Female

DRUGS (1)
  1. NEXAVAR [Suspect]
     Indication: HEPATIC NEOPLASM MALIGNANT
     Dosage: 400 MG, BID
     Route: 048
     Dates: start: 20111017, end: 20120116

REACTIONS (5)
  - BLOOD SODIUM DECREASED [None]
  - PLATELET COUNT DECREASED [None]
  - DECREASED APPETITE [None]
  - HYPOTHYROIDISM [None]
  - HEPATIC FUNCTION ABNORMAL [None]
